FAERS Safety Report 8980184 (Version 3)
Quarter: 2013Q1

REPORT INFORMATION
  Report Type: Report from Study
  Country: AT (occurrence: AT)
  Receive Date: 20121221
  Receipt Date: 20130212
  Transmission Date: 20140127
  Serious: Yes (Hospitalization, Other)
  Sender: FDA-Public Use
  Company Number: PHHY2012AT116528

PATIENT
  Age: 67 Year
  Sex: Male
  Weight: 105 kg

DRUGS (10)
  1. MYCOPHENOLIC ACID [Suspect]
     Indication: IMMUNOSUPPRESSION
     Dosage: UNK
     Dates: start: 20121106
  2. APREDNISLON [Suspect]
     Indication: IMMUNOSUPPRESSION
     Dosage: UNK
  3. PROGRAF [Suspect]
     Indication: IMMUNOSUPPRESSION
  4. INH [Concomitant]
     Indication: TUBERCULOSIS
  5. ZYVOXID [Concomitant]
     Indication: SEPSIS
     Dates: end: 20121111
  6. MEROPENEM [Concomitant]
     Indication: SEPSIS
     Dates: end: 20121111
  7. VALCYTE [Concomitant]
     Indication: CYTOMEGALOVIRUS INFECTION
  8. PANTOLOC [Concomitant]
     Indication: PROPHYLAXIS AGAINST GASTROINTESTINAL ULCER
  9. INSULIN [Concomitant]
     Indication: TYPE 2 DIABETES MELLITUS
  10. LASIX [Concomitant]
     Indication: RENAL IMPAIRMENT

REACTIONS (13)
  - Skin disorder [Unknown]
  - Skin lesion [Unknown]
  - Blister [Recovering/Resolving]
  - Erythema [Unknown]
  - Oedema peripheral [Unknown]
  - Staphylococcal sepsis [Unknown]
  - C-reactive protein increased [Not Recovered/Not Resolved]
  - Anaemia [Recovered/Resolved]
  - Thrombocytopenia [Recovered/Resolved]
  - Leukopenia [Recovered/Resolved]
  - Thrombophlebitis [Not Recovered/Not Resolved]
  - Blood creatinine increased [Not Recovered/Not Resolved]
  - Diabetes mellitus [Not Recovered/Not Resolved]
